FAERS Safety Report 7373146-6 (Version None)
Quarter: 2011Q1

REPORT INFORMATION
  Report Type: 
  Country: None (occurrence: None)
  Receive Date: 20110324
  Receipt Date: 20110322
  Transmission Date: 20110831
  Serious: Yes (Life-Threatening, Hospitalization)
  Sender: FDA-Public Use
  Company Number: JP-PFIZER INC-2011051173

PATIENT
  Age: 79 Year
  Sex: Male
  Weight: 51 kg

DRUGS (5)
  1. HOKUNALIN [Concomitant]
     Dosage: UNK
     Route: 062
     Dates: start: 20110118
  2. FUROSEMIDE [Concomitant]
     Dosage: UNK
     Dates: start: 20100614
  3. SUTENT [Suspect]
     Indication: GASTROINTESTINAL STROMAL TUMOUR
     Dosage: 50 MG, 1X/DAY
     Route: 048
     Dates: start: 20110222, end: 20110306
  4. PARIET [Concomitant]
     Dosage: UNK
     Route: 048
     Dates: start: 20110222
  5. ALMATOL [Concomitant]
     Dosage: UNK
     Route: 048
     Dates: start: 20100622, end: 20110307

REACTIONS (1)
  - DISSEMINATED INTRAVASCULAR COAGULATION [None]
